FAERS Safety Report 5081038-0 (Version None)
Quarter: 2006Q3

REPORT INFORMATION
  Report Type: 
  Country: None (occurrence: None)
  Receive Date: 20060810
  Receipt Date: 20060728
  Transmission Date: 20061208
  Serious: Yes (Hospitalization)
  Sender: FDA-Public Use
  Company Number: HQ4639814OCT2002

PATIENT
  Age: 53 Year
  Sex: Male
  Weight: 101.7 kg

DRUGS (32)
  1. MYLOTARG [Suspect]
     Indication: ACUTE MYELOID LEUKAEMIA
     Dosage: 18 MG 1X PER 1 DAY, INTRAVENOUS; SEE IMAGE
     Route: 042
     Dates: start: 20020913, end: 20020913
  2. MYLOTARG [Suspect]
     Indication: ACUTE MYELOID LEUKAEMIA
     Dosage: 18 MG 1X PER 1 DAY, INTRAVENOUS; SEE IMAGE
     Route: 042
     Dates: start: 20020926, end: 20020926
  3. ZOLOFT [Concomitant]
  4. PREVACID [Concomitant]
  5. TOPROL-XL [Concomitant]
  6. AMBIEN [Concomitant]
  7. CIPRO [Concomitant]
  8. ACYCLOVIR [Concomitant]
  9. SENOKOT [Concomitant]
  10. DIFLUCAN [Concomitant]
  11. NOVOLIN N [Concomitant]
  12. BACLOFEN [Concomitant]
  13. BENADRYL [Concomitant]
  14. GEMFIBROZIL [Concomitant]
  15. IMDUR [Concomitant]
  16. LISINOPRIL [Concomitant]
  17. METOPROLOL TARTRATE [Concomitant]
  18. NIASPAN [Concomitant]
  19. SUCRALFATE [Concomitant]
  20. VIOXX [Concomitant]
  21. ZYPREXA [Concomitant]
  22. CELEBREX [Concomitant]
  23. DILTIAZEM [Concomitant]
  24. METFORMIN HCL [Concomitant]
  25. NITROSTAT [Concomitant]
  26. PLAVIX [Concomitant]
  27. PROPOXYPHENE COMPOUND (ACETYLSALICYLIC ACID/CAFFEINE/DEXTROPROPOXYPHEN [Concomitant]
  28. RABEPRAZOLE (RABEPRAZOLE) [Concomitant]
  29. TRAZODONE HCL [Concomitant]
  30. DEXAMETHASONE TAB [Concomitant]
  31. NOVOLIN R [Concomitant]
  32. MAXIPIME [Concomitant]

REACTIONS (5)
  - BLOOD CULTURE POSITIVE [None]
  - CHILLS [None]
  - FEBRILE NEUTROPENIA [None]
  - INFUSION RELATED REACTION [None]
  - STAPHYLOCOCCAL BACTERAEMIA [None]
